FAERS Safety Report 4864861-4 (Version None)
Quarter: 2005Q4

REPORT INFORMATION
  Report Type: 
  Country: None (occurrence: None)
  Receive Date: 20051201
  Receipt Date: 20050720
  Transmission Date: 20060501
  Serious: No
  Sender: FDA-Public Use
  Company Number: 2005PV000488

PATIENT
  Age: 53 Year
  Sex: Female
  Weight: 109.7705 kg

DRUGS (13)
  1. BYETTA [Suspect]
     Indication: DIABETES MELLITUS NON-INSULIN-DEPENDENT
     Dosage: 5 MCG; BID; SC; 10 MCG; BID; SC
     Route: 058
     Dates: start: 20050623, end: 20050715
  2. BYETTA [Suspect]
     Indication: DIABETES MELLITUS NON-INSULIN-DEPENDENT
     Dosage: 5 MCG; BID; SC; 10 MCG; BID; SC
     Route: 058
     Dates: start: 20050716
  3. GLUCOPHAGE [Concomitant]
  4. ACTOS [Concomitant]
  5. LIPITOR [Concomitant]
  6. TRAZODONE [Concomitant]
  7. ZOLOFT [Concomitant]
  8. TRICOR [Concomitant]
  9. PREVACID [Concomitant]
  10. MULTIVITAMIN [Concomitant]
  11. FISH OIL [Concomitant]
  12. MAGNESIUM [Concomitant]
  13. GLIPIZIDE [Concomitant]

REACTIONS (5)
  - BLOOD GLUCOSE INCREASED [None]
  - MALAISE [None]
  - MIGRAINE [None]
  - WEIGHT DECREASED [None]
  - WEIGHT INCREASED [None]
